FAERS Safety Report 13872944 (Version 1)
Quarter: 2017Q3

REPORT INFORMATION
  Report Type: Spontaneous
  Country: FR (occurrence: FR)
  Receive Date: 20170816
  Receipt Date: 20170816
  Transmission Date: 20171127
  Serious: Yes (Disabling, Other)
  Sender: FDA-Public Use
  Company Number: FR-ACCORD-057215

PATIENT
  Age: 46 Year
  Sex: Male
  Weight: 84 kg

DRUGS (6)
  1. CISPLATIN ACCORD [Suspect]
     Active Substance: CISPLATIN
     Indication: ADENOCARCINOMA GASTRIC
     Dosage: STRENGTH: 1 MG/ML?2 CY ON 13-APR/07-JUN-2017
     Route: 042
     Dates: start: 20170301
  2. FLUOROURACIL ACCORD [Suspect]
     Active Substance: FLUOROURACIL
     Indication: ADENOCARCINOMA GASTRIC
     Dosage: STRENGTH: 50 MG/ML?CYCLE 2 ON 13-APR/07-JUN-2017.
     Route: 042
     Dates: start: 20170301
  3. CITALOPRAM [Concomitant]
     Active Substance: CITALOPRAM HYDROBROMIDE
  4. BISOCE [Concomitant]
     Active Substance: BISOPROLOL
     Dosage: 1 DF IN MORNING
  5. TRIATEC [Concomitant]
     Active Substance: RAMIPRIL
     Dosage: 1 DF IN MORNING
  6. HERCEPTIN [Suspect]
     Active Substance: TRASTUZUMAB
     Indication: ADENOCARCINOMA GASTRIC
     Dosage: 2 CY ON 23-MAR AT 536 MG?07-JUN-2017 AT 530 MG
     Route: 042
     Dates: start: 20170301

REACTIONS (4)
  - Meningitis [Unknown]
  - Dysphagia [Unknown]
  - Occipital neuralgia [Unknown]
  - Papilloedema [Not Recovered/Not Resolved]

NARRATIVE: CASE EVENT DATE: 201705
